FAERS Safety Report 7917433-9 (Version None)
Quarter: 2011Q4

REPORT INFORMATION
  Report Type: 
  Country: None (occurrence: None)
  Receive Date: 20111116
  Receipt Date: 20111107
  Transmission Date: 20120403
  Serious: Yes (Hospitalization, Other)
  Sender: FDA-Public Use
  Company Number: US-SANOFI-AVENTIS-2011SA074062

PATIENT
  Age: 70 Year
  Sex: Male
  Weight: 144 kg

DRUGS (13)
  1. WARFARIN SODIUM [Concomitant]
     Indication: THROMBOSIS PROPHYLAXIS
     Dates: start: 20100601
  2. DIGOXIN [Concomitant]
  3. ASPIRIN [Concomitant]
  4. LISINOPRIL [Concomitant]
     Indication: HYPERTENSION
  5. FAMOTIDINE [Concomitant]
  6. CARVEDILOL [Concomitant]
     Indication: HYPERTENSION
  7. ASPIRIN [Concomitant]
     Dates: start: 20100601
  8. TERAZOSIN HCL [Concomitant]
  9. AMIODARONE HCL [Suspect]
     Route: 065
     Dates: start: 20110926
  10. PLAVIX [Suspect]
     Indication: THROMBOSIS PROPHYLAXIS
     Route: 065
     Dates: start: 20100601
  11. AMIODARONE HCL [Suspect]
     Indication: ATRIAL FIBRILLATION
     Route: 065
     Dates: start: 20110701, end: 20110925
  12. SIMVASTATIN [Concomitant]
     Dates: start: 20100601
  13. HYDRALAZINE HCL [Concomitant]
     Indication: HYPERTENSION

REACTIONS (9)
  - VISION BLURRED [None]
  - EYE INFLAMMATION [None]
  - ATRIAL FIBRILLATION [None]
  - ANAEMIA [None]
  - HAEMOGLOBIN DECREASED [None]
  - EYE HAEMORRHAGE [None]
  - DEVICE MALFUNCTION [None]
  - RETINAL DETACHMENT [None]
  - FEELING ABNORMAL [None]
